FAERS Safety Report 9299881 (Version 1)
Quarter: 2013Q1

REPORT INFORMATION
  Report Type: Spontaneous
  Country: US (occurrence: None)
  Receive Date: 20121231
  Receipt Date: 20121231
  Transmission Date: 20140127
  Serious: Yes (Other)
  Sender: FDA-Public Use
  Company Number: RB-45715-2012

PATIENT
  Sex: Female

DRUGS (8)
  1. SUBOXONE [Suspect]
     Indication: DRUG DEPENDENCE
  2. BUPRENORPHINE [Suspect]
     Route: 060
  3. EFFEXOR [Concomitant]
  4. DEPAKOTE [Concomitant]
  5. NEURONTIN [Concomitant]
  6. KLONOPIN [Concomitant]
  7. PROPANOLOL [Concomitant]
  8. PHENERGAN [Concomitant]

REACTIONS (8)
  - Hallucination [None]
  - Fatigue [None]
  - Oedema peripheral [None]
  - Eructation [None]
  - Oral mucosal blistering [None]
  - Psychomotor hyperactivity [None]
  - Wrong technique in drug usage process [None]
  - Substance abuse [None]
